FAERS Safety Report 4286133-1 (Version None)
Quarter: 2004Q1

REPORT INFORMATION
  Report Type: 
  Country: None (occurrence: None)
  Receive Date: 20040203
  Receipt Date: 20040122
  Transmission Date: 20041129
  Serious: Yes (Hospitalization)
  Sender: FDA-Public Use
  Company Number: 2003113853

PATIENT
  Age: 72 Year
  Sex: Female
  Weight: 78 kg

DRUGS (4)
  1. ZOLOFT [Suspect]
     Indication: DEPRESSION
     Dosage: 50 MG (DAILY), ORAL
     Route: 048
     Dates: start: 20031010, end: 20030101
  2. HYZAAR [Suspect]
     Indication: HYPERTENSION
     Dosage: (DAILY), ORAL
     Route: 048
     Dates: start: 20010820, end: 20030101
  3. PRAVASTATIN SODIUM [Concomitant]
  4. FLECAINIDE ACETATE [Concomitant]

REACTIONS (5)
  - ALCOHOL POISONING [None]
  - BLOOD POTASSIUM DECREASED [None]
  - DRUG INTERACTION [None]
  - HYPERTENSION [None]
  - HYPONATRAEMIA [None]
